FAERS Safety Report 9644455 (Version 3)
Quarter: 2014Q1

REPORT INFORMATION
  Report Type: Spontaneous
  Country: PT (occurrence: PT)
  Receive Date: 20131025
  Receipt Date: 20140327
  Transmission Date: 20141002
  Serious: Yes (Other)
  Sender: FDA-Public Use
  Company Number: PT-LUNDBECK-DKLU1094693

PATIENT
  Age: 4 Year
  Sex: Male

DRUGS (15)
  1. CLOBAZAM [Suspect]
     Indication: EPILEPSY
  2. VIGABATRIN (TABLET) [Suspect]
     Indication: EPILEPSY
  3. VALPROATE SODIUM [Suspect]
     Indication: EPILEPSY
     Route: 048
  4. TOPIRAMATE [Suspect]
     Indication: EPILEPSY
  5. FENOBARBITAL [Suspect]
     Indication: EPILEPSY
  6. ZONISAMIDE [Suspect]
     Indication: EPILEPSY
  7. LEVETIRACETAM [Suspect]
     Indication: EPILEPSY
  8. LAMOTRIGINE [Suspect]
     Indication: EPILEPSY
  9. CLONAZEPAM [Suspect]
     Indication: EPILEPSY
  10. PHENYTOIN [Suspect]
     Indication: EPILEPSY
  11. CARBAMAZEPINE [Suspect]
     Indication: EPILEPSY
  12. PYRIDOXINE [Suspect]
     Indication: PRODUCT USED FOR UNKNOWN INDICATION
  13. PREDNISOLONE [Suspect]
     Indication: PRODUCT USED FOR UNKNOWN INDICATION
  14. RUFINAMIDE [Suspect]
     Indication: EPILEPSY
  15. ANTIEPILEPTICS [Suspect]
     Indication: EPILEPSY

REACTIONS (1)
  - Multiple-drug resistance [Unknown]
